FAERS Safety Report 12231746 (Version 1)
Quarter: 2016Q2

REPORT INFORMATION
  Report Type: Spontaneous
  Country: US (occurrence: US)
  Receive Date: 20160401
  Receipt Date: 20160401
  Transmission Date: 20160815
  Serious: No
  Sender: FDA-Public Use
  Company Number: US-WARNER CHILCOTT, LLC-1050127

PATIENT
  Age: 61 Year
  Sex: Female

DRUGS (4)
  1. PROLIA [Concomitant]
     Active Substance: DENOSUMAB
  2. FEMRING [Suspect]
     Active Substance: ESTRADIOL ACETATE
     Indication: VAGINAL PH ABNORMAL
     Route: 067
  3. FEMRING [Suspect]
     Active Substance: ESTRADIOL ACETATE
     Indication: VULVOVAGINAL BURNING SENSATION
     Route: 067
  4. ANTIHYPERTENSIVES [Concomitant]
     Active Substance: UNSPECIFIED INGREDIENT

REACTIONS (4)
  - Vaginal odour [None]
  - Vaginal discharge [None]
  - Alopecia [None]
  - Hyperhidrosis [None]
